FAERS Safety Report 21912991 (Version 1)
Quarter: 2023Q1

REPORT INFORMATION
  Report Type: Spontaneous
  Country: US (occurrence: US)
  Receive Date: 20230125
  Receipt Date: 20230125
  Transmission Date: 20230418
  Serious: No
  Sender: FDA-Public Use
  Company Number: US-ALLERGAN-2234677US

PATIENT
  Age: 53 Year
  Sex: Female

DRUGS (1)
  1. BOTOX [Suspect]
     Active Substance: ONABOTULINUMTOXINA
     Indication: Skin wrinkling
     Dosage: 62 UNITS, SINGLE
     Dates: start: 20221008

REACTIONS (8)
  - Erysipelas [Recovering/Resolving]
  - Cellulitis [Recovering/Resolving]
  - Periorbital swelling [Unknown]
  - Dermatitis [Unknown]
  - Swelling face [Unknown]
  - Facial pain [Unknown]
  - Skin discharge [Unknown]
  - Erythema [Unknown]

NARRATIVE: CASE EVENT DATE: 20221010
